FAERS Safety Report 23073863 (Version 1)
Quarter: 2023Q4

REPORT INFORMATION
  Report Type: Report from Study
  Country: CO (occurrence: CO)
  Receive Date: 20231017
  Receipt Date: 20231017
  Transmission Date: 20240110
  Serious: Yes (Hospitalization)
  Sender: FDA-Public Use
  Company Number: CO-ASTELLAS-2023US010613

PATIENT
  Age: 36 Year
  Sex: Male

DRUGS (1)
  1. TACROLIMUS [Suspect]
     Active Substance: TACROLIMUS
     Indication: Renal transplant
     Dosage: 7 MG, ONCE DAILY (5MG X 1 CAPSULE AND 1 MG X 2 CAPSULES)
     Route: 048
     Dates: start: 20220826, end: 202305

REACTIONS (3)
  - Ocular discomfort [Recovering/Resolving]
  - Urinary tract infection [Recovering/Resolving]
  - Alopecia [Recovering/Resolving]

NARRATIVE: CASE EVENT DATE: 20230201
